FAERS Safety Report 6574682-2 (Version None)
Quarter: 2010Q1

REPORT INFORMATION
  Report Type: 
  Country: None (occurrence: None)
  Receive Date: 20100209
  Receipt Date: 20100204
  Transmission Date: 20100710
  Serious: Yes (Death)
  Sender: FDA-Public Use
  Company Number: PHHY2010BR05877

PATIENT
  Age: 56 Year
  Sex: Female
  Weight: 96 kg

DRUGS (2)
  1. GLEEVEC [Suspect]
     Indication: GASTRIC CANCER
  2. TEGRETOL [Suspect]

REACTIONS (1)
  - METASTASES TO STOMACH [None]
